FAERS Safety Report 10851390 (Version 1)
Quarter: 2015Q1

REPORT INFORMATION
  Report Type: Spontaneous
  Country: US (occurrence: US)
  Receive Date: 20150222
  Receipt Date: 20150222
  Transmission Date: 20150721
  Serious: No
  Sender: FDA-Public Use
  Company Number: US-ALLERGAN-1407256US

PATIENT
  Age: 38 Year
  Sex: Female

DRUGS (2)
  1. BOTOX COSMETIC [Suspect]
     Active Substance: ONABOTULINUMTOXINA
     Indication: SKIN WRINKLING
     Dosage: UNK, SINGLE
     Route: 030
     Dates: start: 20140317, end: 20140317
  2. BOTOX COSMETIC [Suspect]
     Active Substance: ONABOTULINUMTOXINA
     Indication: SKIN WRINKLING

REACTIONS (18)
  - Influenza like illness [Recovered/Resolved]
  - Pain in extremity [Recovered/Resolved]
  - Foreign body sensation in eyes [Not Recovered/Not Resolved]
  - Pain [Recovered/Resolved]
  - Mobility decreased [Recovered/Resolved]
  - Fatigue [Recovered/Resolved]
  - Rash [Unknown]
  - Therapeutic response decreased [Unknown]
  - Sensory disturbance [Recovered/Resolved]
  - Asthenopia [Not Recovered/Not Resolved]
  - Pyrexia [Recovered/Resolved]
  - Hyperhidrosis [Recovered/Resolved]
  - Vitamin D decreased [Unknown]
  - Ocular hyperaemia [Recovering/Resolving]
  - Conjunctivitis [Recovering/Resolving]
  - Eye pain [Not Recovered/Not Resolved]
  - White blood cell count increased [Unknown]
  - Contusion [Unknown]

NARRATIVE: CASE EVENT DATE: 20140317
